FAERS Safety Report 5168096-X (Version None)
Quarter: 2006Q4

REPORT INFORMATION
  Report Type: 
  Country: None (occurrence: None)
  Receive Date: 20061208
  Receipt Date: 20061026
  Transmission Date: 20070319
  Serious: Yes (Other)
  Sender: FDA-Public Use
  Company Number: PHEH2006US13404

PATIENT
  Age: 57 Year
  Sex: Female

DRUGS (8)
  1. ZOMETA [Suspect]
     Indication: BREAST CANCER METASTATIC
     Dosage: 3.5-4 MG IV Q4WEEKS
     Route: 042
     Dates: start: 20051130, end: 20060921
  2. OXYCONTIN [Concomitant]
  3. PROTONIX [Concomitant]
  4. DECADRON [Concomitant]
     Indication: PREMEDICATION
     Dosage: 10 MG, UNK
     Route: 042
     Dates: start: 20051107, end: 20060921
  5. ADRIAMYCIN PFS [Concomitant]
     Indication: CHEMOTHERAPY
     Dosage: UNK, ONCE/SINGLE
     Dates: start: 20060124, end: 20060124
  6. CYTOXAN [Concomitant]
     Indication: CHEMOTHERAPY
     Dosage: UNK, ONCE/SINGLE
     Dates: start: 20060124, end: 20060124
  7. TAXOTERE [Concomitant]
     Indication: CHEMOTHERAPY
     Dates: start: 20060417, end: 20060921
  8. GEMZAR [Concomitant]
     Indication: CHEMOTHERAPY
     Dosage: DAYS 1, 8, 15 EVERY 4 WEEKS
     Dates: start: 20060417, end: 20060921

REACTIONS (12)
  - ANAEMIA [None]
  - BONE DISORDER [None]
  - DENTAL CARIES [None]
  - FISTULA [None]
  - GINGIVAL INFECTION [None]
  - INCISIONAL DRAINAGE [None]
  - ORAL INFECTION [None]
  - ORAL SOFT TISSUE DISORDER [None]
  - OSTEOMYELITIS [None]
  - OSTEONECROSIS [None]
  - PAIN IN JAW [None]
  - SWELLING [None]
